FAERS Safety Report 5336330-9 (Version None)
Quarter: 2007Q2

REPORT INFORMATION
  Report Type: 
  Country: None (occurrence: None)
  Receive Date: 20070523
  Receipt Date: 20070515
  Transmission Date: 20071010
  Serious: Yes (Other)
  Sender: FDA-Public Use
  Company Number: 2006SP002405

PATIENT
  Age: 40 Year
  Sex: Female
  Weight: 63.9572 kg

DRUGS (10)
  1. PEG-INTRON [Suspect]
     Indication: HEPATITIS C
     Dosage: 120 MCG;QW;SC
     Route: 059
     Dates: start: 20060802, end: 20060828
  2. REBETOL [Suspect]
     Indication: HEPATITIS C
     Dosage: SEE IMAGE
     Route: 048
     Dates: start: 20060802, end: 20060828
  3. REBETOL [Suspect]
     Indication: HEPATITIS C
     Dosage: SEE IMAGE
     Route: 048
     Dates: start: 20060802, end: 20060828
  4. GABAPENTIN [Concomitant]
  5. PROTONIX [Concomitant]
  6. ACETAMINOPHEN AND HYDROCODONE BITARTRATE [Concomitant]
  7. SOMA [Concomitant]
  8. CLONAZEPAM [Concomitant]
  9. EFFEXOR [Concomitant]
  10. TRAMADOL HCL [Concomitant]

REACTIONS (9)
  - AMNESIA [None]
  - CRYING [None]
  - DEHYDRATION [None]
  - HEADACHE [None]
  - HOMICIDAL IDEATION [None]
  - NAUSEA [None]
  - PYREXIA [None]
  - SUICIDAL IDEATION [None]
  - VOMITING [None]
